FAERS Safety Report 5764718-0 (Version None)
Quarter: 2008Q2

REPORT INFORMATION
  Report Type: 
  Country: None (occurrence: None)
  Receive Date: 20080611
  Receipt Date: 20080529
  Transmission Date: 20081010
  Serious: Yes (Disabling)
  Sender: FDA-Public Use
  Company Number: FR-ELI_LILLY_AND_COMPANY-FR200803004733

PATIENT
  Age: 68 Year
  Sex: Male
  Weight: 80 kg

DRUGS (7)
  1. ALIMTA [Suspect]
     Indication: LUNG NEOPLASM MALIGNANT
     Dosage: 500 MG/M2, EVERY 3 WEEKS
     Route: 042
     Dates: start: 20080316, end: 20080316
  2. FOLIC ACID [Concomitant]
     Indication: VITAMIN SUPPLEMENTATION
     Dosage: UNK, UNKNOWN
     Route: 065
  3. VITAMIN B-12 [Concomitant]
     Indication: VITAMIN SUPPLEMENTATION
     Dosage: UNK, UNKNOWN
     Route: 065
  4. CORTICOSTEROIDS [Concomitant]
     Indication: PROPHYLAXIS
     Dosage: UNK, UNKNOWN
     Route: 065
  5. NEULASTA [Concomitant]
     Indication: LEUKOPENIA
     Dosage: UNK, UNKNOWN
     Route: 042
     Dates: start: 20080316, end: 20080316
  6. KYTRIL [Concomitant]
     Indication: NAUSEA
     Dosage: UNK, UNKNOWN
     Route: 042
     Dates: start: 20080316, end: 20080316
  7. SOLU-MEDROL [Concomitant]
     Indication: NAUSEA
     Dosage: 80 MG, DAILY (1/D)
     Route: 042
     Dates: start: 20080316, end: 20080316

REACTIONS (4)
  - OEDEMA PERIPHERAL [None]
  - PRURITUS GENERALISED [None]
  - PURPURA [None]
  - SKIN LESION [None]
